FAERS Safety Report 10933709 (Version 2)
Quarter: 2015Q2

REPORT INFORMATION
  Report Type: Spontaneous
  Country: US (occurrence: US)
  Receive Date: 20150320
  Receipt Date: 20150526
  Transmission Date: 20150821
  Serious: Yes (Other)
  Sender: FDA-Public Use
  Company Number: US-JNJFOC-20141005619

PATIENT
  Sex: Male

DRUGS (3)
  1. CELEXA [Concomitant]
     Active Substance: CITALOPRAM HYDROBROMIDE
     Route: 065
  2. RISPERDAL [Suspect]
     Active Substance: RISPERIDONE
     Indication: SCHIZOPHRENIA
     Route: 048
     Dates: start: 20080422, end: 20081022
  3. ABILIFY [Concomitant]
     Active Substance: ARIPIPRAZOLE
     Route: 065

REACTIONS (3)
  - Emotional disorder [Unknown]
  - Galactorrhoea [Unknown]
  - Gynaecomastia [Not Recovered/Not Resolved]
